FAERS Safety Report 4607593-X (Version None)
Quarter: 2005Q1

REPORT INFORMATION
  Report Type: 
  Country: None (occurrence: None)
  Receive Date: 20050314
  Receipt Date: 20050302
  Transmission Date: 20050727
  Serious: Yes (Hospitalization)
  Sender: FDA-Public Use
  Company Number: PHNU2005DE01151

PATIENT
  Age: 55 Year
  Sex: Male

DRUGS (7)
  1. AMITRIPTYLINE HCL [Suspect]
     Dosage: 250 MG/DAY
     Route: 048
     Dates: start: 20000919, end: 20000921
  2. AMITRIPTYLINE HCL [Suspect]
     Dosage: 75 MG/DAY
     Route: 048
     Dates: start: 20000923
  3. AMITRIPTYLINE HCL [Suspect]
     Dosage: INCREASING DOSAGES
     Route: 048
  4. TOFRANIL [Suspect]
     Indication: DEPRESSION
     Dosage: UNKNOWN
     Route: 048
     Dates: start: 20000919, end: 20000919
  5. NOVERIL [Suspect]
     Indication: DEPRESSION
     Dosage: 240 MG/DAY
     Route: 048
     Dates: start: 20000919, end: 20000920
  6. CARBAMAZEPINE [Suspect]
     Dosage: 750 MG/DAY
     Route: 048
     Dates: start: 20000919, end: 20000919
  7. TAVOR [Concomitant]
     Dosage: 1 MG/DAY
     Route: 048
     Dates: start: 20000919, end: 20000919

REACTIONS (5)
  - DELIRIUM [None]
  - INCOHERENT [None]
  - RESTLESSNESS [None]
  - SPEECH DISORDER [None]
  - TREMOR [None]
